FAERS Safety Report 4628477-7 (Version None)
Quarter: 2005Q2

REPORT INFORMATION
  Report Type: 
  Country: None (occurrence: None)
  Receive Date: 20050404
  Receipt Date: 20050317
  Transmission Date: 20051028
  Serious: Yes (Hospitalization)
  Sender: FDA-Public Use
  Company Number: 2005-0008177

PATIENT
  Age: 67 Year
  Sex: Female
  Weight: 48 kg

DRUGS (10)
  1. VIREAD [Suspect]
     Indication: HIV INFECTION
     Dosage: 300 MG, 1 IN 1 D, ORAL
     Route: 048
     Dates: start: 20040324, end: 20041006
  2. ENTRUVA           (EMTRICITABINE) [Suspect]
     Indication: HIV INFECTION
     Dosage: 200 MG, 1 IN 1 D, ORAL
     Route: 048
     Dates: start: 20040324, end: 20041006
  3. NORVIR [Suspect]
     Indication: HIV INFECTION
     Dosage: 100 MG, 1 IN 1 D, ORAL
     Route: 048
     Dates: start: 20040324, end: 20041006
  4. ATAZANAVIR SULFATE [Suspect]
     Indication: HIV INFECTION
     Dosage: 150 MG, 2 IN 1 D, ORAL
     Route: 048
     Dates: start: 20040324, end: 20041006
  5. PREVISCAN (FLUINDIONE) [Concomitant]
  6. FENOFIBRATE [Concomitant]
  7. RABEPRAZOLE SODIUM [Concomitant]
  8. LEVOCARNIL (LEVOCARNITINE) [Concomitant]
  9. CACIT (CACIT) [Concomitant]
  10. TARDYFERRON (FERROUS SULFATE) [Concomitant]

REACTIONS (4)
  - CONSTIPATION [None]
  - CYTOLYTIC HEPATITIS [None]
  - MUSCLE SPASMS [None]
  - RENAL FAILURE ACUTE [None]
